FAERS Safety Report 15353006 (Version 1)
Quarter: 2018Q3

REPORT INFORMATION
  Report Type: Spontaneous
  Country: GB (occurrence: GB)
  Receive Date: 20180905
  Receipt Date: 20180905
  Transmission Date: 20181010
  Serious: Yes (Disabling, Other)
  Sender: FDA-Public Use
  Company Number: GB-JNJFOC-20180842731

PATIENT
  Age: 53 Year
  Sex: Male
  Weight: 110 kg

DRUGS (6)
  1. RITONAVIR. [Suspect]
     Active Substance: RITONAVIR
     Indication: HIV INFECTION
     Route: 065
     Dates: start: 20151104, end: 20160706
  2. AMLODIPINE [Concomitant]
     Active Substance: AMLODIPINE BESYLATE
     Route: 065
  3. REZOLSTA [Suspect]
     Active Substance: COBICISTAT\DARUNAVIR ETHANOLATE
     Indication: HIV INFECTION
     Dosage: 800 MG DARUNAVIR/150 MG COBICISTAT
     Route: 048
     Dates: start: 20160706, end: 20171228
  4. DARUNAVIR [Suspect]
     Active Substance: DARUNAVIR
     Indication: HIV INFECTION
     Route: 048
     Dates: start: 20151104, end: 20160708
  5. ACICLOVIR [Concomitant]
     Active Substance: ACYCLOVIR
     Route: 065
  6. LOSARTAN POTASSIUM. [Concomitant]
     Active Substance: LOSARTAN POTASSIUM
     Route: 065

REACTIONS (4)
  - Loose tooth [Recovered/Resolved with Sequelae]
  - Tooth injury [Recovered/Resolved with Sequelae]
  - Malaise [Unknown]
  - Dental discomfort [Unknown]

NARRATIVE: CASE EVENT DATE: 20160501
